FAERS Safety Report 4662028-6 (Version None)
Quarter: 2005Q2

REPORT INFORMATION
  Report Type: 
  Country: None (occurrence: None)
  Receive Date: 20050512
  Receipt Date: 20050503
  Transmission Date: 20051028
  Serious: Yes (Other)
  Sender: FDA-Public Use
  Company Number: CHPA2005US01238

PATIENT
  Age: 67 Year
  Sex: Male
  Weight: 83.9 kg

DRUGS (4)
  1. CONTROL STEP [Suspect]
     Indication: SMOKING CESSATION THERAPY
     Dosage: 21 MG, QD, TRANSDERMAL
     Route: 062
     Dates: start: 20050426
  2. CARDIOVASCULAR DRUGS (NO INGREDIENTS/SUBSTANCES) [Concomitant]
  3. ANALGESICS (NO INGREDIENTS/SUBSTANCES) [Concomitant]
  4. ANTIASTHMATICS (NO INGREDIENTS/SUBSTANCES) INHALER [Concomitant]

REACTIONS (2)
  - BLOOD PRESSURE DECREASED [None]
  - LOSS OF CONSCIOUSNESS [None]
